FAERS Safety Report 15955026 (Version 6)
Quarter: 2019Q3

REPORT INFORMATION
  Report Type: Spontaneous
  Country: ES (occurrence: ES)
  Receive Date: 20190213
  Receipt Date: 20190921
  Transmission Date: 20191004
  Serious: Yes (Hospitalization, Other)
  Sender: FDA-Public Use
  Company Number: ES-AUROBINDO-AUR-APL-2019-006890

PATIENT
  Age: 59 Year
  Sex: Female

DRUGS (8)
  1. DULOXETINE 60 MG [Suspect]
     Active Substance: DULOXETINE
     Indication: NEURALGIA
  2. DULOXETINE 60 MG [Suspect]
     Active Substance: DULOXETINE
     Indication: CERVICOBRACHIAL SYNDROME
     Dosage: 30 MILLIGRAM, UNK
     Route: 065
  3. CELEBREX [Suspect]
     Active Substance: CELECOXIB
     Indication: CERVICOBRACHIAL SYNDROME
     Dosage: 200 MILLIGRAM, UNK
     Route: 065
  4. DULOXETINE 60 MG [Suspect]
     Active Substance: DULOXETINE
     Indication: BACK PAIN
     Dosage: 60 MILLIGRAM (REDUCED AGAIN TO 30MG)
     Route: 048
  5. ATORVASTATIN [Suspect]
     Active Substance: ATORVASTATIN
     Indication: DYSLIPIDAEMIA
     Dosage: UNK
     Route: 065
  6. PAZITAL [Suspect]
     Active Substance: ACETAMINOPHEN\TRAMADOL HYDROCHLORIDE
     Indication: BACK PAIN
  7. PAZITAL [Suspect]
     Active Substance: ACETAMINOPHEN\TRAMADOL HYDROCHLORIDE
     Indication: CERVICOBRACHIAL SYNDROME
     Dosage: UNK, 37.5/325 MG
     Route: 065
  8. CELEBREX [Suspect]
     Active Substance: CELECOXIB
     Indication: BACK PAIN

REACTIONS (2)
  - Laryngeal oedema [Recovered/Resolved]
  - Dysphonia [Recovered/Resolved]
